FAERS Safety Report 21575405 (Version 1)
Quarter: 2022Q4

REPORT INFORMATION
  Report Type: Spontaneous
  Country: US (occurrence: US)
  Receive Date: 20221110
  Receipt Date: 20221110
  Transmission Date: 20230112
  Serious: No
  Sender: FDA-Public Use
  Company Number: US-STRIDES ARCOLAB LIMITED-2022SP010290

PATIENT
  Age: 31 Year
  Sex: Female

DRUGS (4)
  1. URSODIOL [Suspect]
     Active Substance: URSODIOL
     Indication: Pruritus
     Dosage: UNK, UNKNOWN (FIRST PREGNANCY)
     Route: 065
  2. URSODIOL [Suspect]
     Active Substance: URSODIOL
     Dosage: UNK, UNKNOWN (SECOND PREGNANCY)
     Route: 065
  3. HYDROXYZINE HYDROCHLORIDE [Suspect]
     Active Substance: HYDROXYZINE HYDROCHLORIDE
     Indication: Pruritus
     Dosage: UNK, UNKNOWN (FIRST PREGNANCY)
     Route: 065
  4. CHOLESTYRAMINE [Suspect]
     Active Substance: CHOLESTYRAMINE
     Indication: Pruritus
     Dosage: UNK, UNKNOWN (SECOND PREGNANCY)
     Route: 065

REACTIONS (3)
  - Therapy partial responder [Unknown]
  - Maternal exposure during pregnancy [Unknown]
  - Off label use [Unknown]
